FAERS Safety Report 13757659 (Version 2)
Quarter: 2017Q3

REPORT INFORMATION
  Report Type: Spontaneous
  Country: GR (occurrence: GR)
  Receive Date: 20170717
  Receipt Date: 20170728
  Transmission Date: 20171127
  Serious: Yes (Hospitalization)
  Sender: FDA-Public Use
  Company Number: GR-ACCORD-053511

PATIENT
  Age: 64 Year
  Sex: Male

DRUGS (4)
  1. IRINOTECAN [Suspect]
     Active Substance: IRINOTECAN
     Indication: COLORECTAL CANCER METASTATIC
     Dosage: WITH 20% DOSE REDUCTION EVERY 2 WEEKS
     Dates: start: 20160712
  2. FLUOROURACIL. [Suspect]
     Active Substance: FLUOROURACIL
     Indication: COLORECTAL CANCER METASTATIC
     Dosage: WITH 20% DOSE REDUCTION EVERY 2 WEEKS
     Dates: start: 20160712
  3. AFLIBERCEPT [Suspect]
     Active Substance: AFLIBERCEPT
     Indication: COLORECTAL CANCER METASTATIC
     Dosage: WITH 20% DOSE REDUCTION EVERY 2 WEEKS
     Dates: start: 20160712
  4. FOLINIC ACID [Suspect]
     Active Substance: LEUCOVORIN
     Indication: COLORECTAL CANCER METASTATIC
     Dosage: WITH 20% DOSE REDUCTION ?EVERY 2 WEEKS
     Dates: start: 20160712

REACTIONS (1)
  - Posterior reversible encephalopathy syndrome [Recovering/Resolving]
